FAERS Safety Report 7323251-5 (Version None)
Quarter: 2011Q1

REPORT INFORMATION
  Report Type: 
  Country: None (occurrence: None)
  Receive Date: 20110217
  Receipt Date: 20110208
  Transmission Date: 20110831
  Serious: Yes (Hospitalization)
  Sender: FDA-Public Use
  Company Number: 010212

PATIENT
  Sex: Female
  Weight: 51 kg

DRUGS (3)
  1. CERTOLIZUMAB PEGOL (CERTOLIZUMAB PEGOL) [Suspect]
     Indication: CROHN'S DISEASE
     Dosage: SEE IMAGE; SUBCUTANEOUS
     Route: 058
     Dates: start: 20050315, end: 20100224
  2. CERTOLIZUMAB PEGOL (CERTOLIZUMAB PEGOL) [Suspect]
     Indication: CROHN'S DISEASE
     Dosage: SEE IMAGE; SUBCUTANEOUS
     Route: 058
     Dates: start: 20040830, end: 20040927
  3. CERTOLIZUMAB PEGOL (CERTOLIZUMAB PEGOL) [Suspect]
     Indication: CROHN'S DISEASE
     Dosage: SEE IMAGE; SUBCUTANEOUS
     Route: 058
     Dates: start: 20041024, end: 20050214

REACTIONS (8)
  - CHOLELITHIASIS [None]
  - CARDIAC DISORDER [None]
  - RED BLOOD CELL COUNT DECREASED [None]
  - LEUKOPENIA [None]
  - CHOLECYSTITIS CHRONIC [None]
  - PERITONEAL ADHESIONS [None]
  - INTESTINAL FISTULA [None]
  - PANCREATITIS CHRONIC [None]
